FAERS Safety Report 25221718 (Version 2)
Quarter: 2025Q2

REPORT INFORMATION
  Report Type: Spontaneous
  Country: US (occurrence: US)
  Receive Date: 20250421
  Receipt Date: 20250513
  Transmission Date: 20250716
  Serious: No
  Sender: SANOFI AVENTIS
  Company Number: US-SA-2025SA113560

PATIENT
  Age: 27 Year
  Sex: Female

DRUGS (1)
  1. DUPIXENT [Suspect]
     Active Substance: DUPILUMAB
     Indication: Dermatitis atopic
     Dosage: 300 MG, QOW
     Dates: start: 202503

REACTIONS (3)
  - Ear infection [Unknown]
  - Oral herpes [Unknown]
  - Conjunctivitis [Unknown]

NARRATIVE: CASE EVENT DATE: 20250101
